FAERS Safety Report 4389524-3 (Version None)
Quarter: 2004Q2

REPORT INFORMATION
  Report Type: 
  Country: None (occurrence: None)
  Receive Date: 20040628
  Receipt Date: 20040615
  Transmission Date: 20050107
  Serious: Yes (Other)
  Sender: FDA-Public Use
  Company Number: DE-JNJFOC-20040604394

PATIENT
  Age: 42 Year
  Sex: Male

DRUGS (2)
  1. TOPAMAX [Suspect]
     Indication: EPILEPSY
     Dosage: 400 MG, 1 IN 1 DAY, ORAL
     Route: 048
     Dates: start: 20040101
  2. KEPPRA [Suspect]
     Indication: EPILEPSY
     Dates: start: 20040201

REACTIONS (1)
  - PANCREATITIS NECROTISING [None]
